FAERS Safety Report 14169041 (Version 3)
Quarter: 2019Q1

REPORT INFORMATION
  Report Type: Spontaneous
  Country: US (occurrence: US)
  Receive Date: 20171108
  Receipt Date: 20190111
  Transmission Date: 20190417
  Serious: No
  Sender: FDA-Public Use
  Company Number: US-PFIZER INC-2017481728

PATIENT
  Age: 54 Year
  Sex: Female
  Weight: 43.9 kg

DRUGS (7)
  1. PREDNISONE. [Concomitant]
     Active Substance: PREDNISONE
     Indication: RHEUMATOID ARTHRITIS
     Dosage: UNK
  2. HYDROCODONE [Concomitant]
     Active Substance: HYDROCODONE
     Indication: PAIN
     Dosage: 7.5 MG, UNK
     Route: 048
  3. PHENYTOIN. [Concomitant]
     Active Substance: PHENYTOIN
     Indication: RHEUMATOID ARTHRITIS
     Dosage: 5 MG, DAILY (ONE A DAY)
     Route: 048
  4. DILANTIN [Suspect]
     Active Substance: PHENYTOIN
     Indication: EPILEPSY
     Dosage: 300 MG, 1X/DAY (AT BED TIME)
     Route: 048
     Dates: start: 2005
  5. DILANTIN [Suspect]
     Active Substance: PHENYTOIN
     Dosage: 200 MG, UNK
  6. PHENYTOIN. [Concomitant]
     Active Substance: PHENYTOIN
     Indication: OSTEOPOROSIS
  7. PHENYTOIN. [Concomitant]
     Active Substance: PHENYTOIN
     Indication: DEGENERATIVE BONE DISEASE

REACTIONS (3)
  - Intentional product misuse [Unknown]
  - Nasopharyngitis [Recovered/Resolved]
  - Drug ineffective [Unknown]
